FAERS Safety Report 14298973 (Version 1)
Quarter: 2017Q4

REPORT INFORMATION
  Report Type: Spontaneous
  Country: US (occurrence: US)
  Receive Date: 20171217
  Receipt Date: 20171217
  Transmission Date: 20180321
  Serious: Yes (Other)
  Sender: FDA-Public Use
  Company Number: None

PATIENT
  Age: 56 Year
  Sex: Male
  Weight: 144 kg

DRUGS (1)
  1. ARAVA [Suspect]
     Active Substance: LEFLUNOMIDE
     Indication: RHEUMATOID ARTHRITIS
     Dosage: ?          QUANTITY:90 TABLET(S);?
     Route: 048
     Dates: start: 20171213, end: 20171216

REACTIONS (3)
  - Skin exfoliation [None]
  - Erythema [None]
  - Pruritus [None]

NARRATIVE: CASE EVENT DATE: 20171215
